FAERS Safety Report 4773749-9 (Version None)
Quarter: 2005Q3

REPORT INFORMATION
  Report Type: 
  Country: None (occurrence: None)
  Receive Date: 20050920
  Receipt Date: 20050909
  Transmission Date: 20060218
  Serious: Yes (Death)
  Sender: FDA-Public Use
  Company Number: US-BRISTOL-MYERS SQUIBB COMPANY-13106604

PATIENT
  Age: 57 Year
  Sex: Female
  Weight: 62 kg

DRUGS (9)
  1. ABILIFY [Suspect]
     Indication: BIPOLAR DISORDER
     Route: 048
  2. CENESTIN [Concomitant]
  3. DITROPAN [Concomitant]
  4. LEXAPRO [Concomitant]
  5. LITHIUM CARBONATE [Concomitant]
  6. OS-CAL [Concomitant]
  7. SINEMET CR [Concomitant]
  8. AMANTADINE [Concomitant]
  9. SYNTHROID [Concomitant]

REACTIONS (1)
  - ACUTE CORONARY SYNDROME [None]
